FAERS Safety Report 4338259-1 (Version None)
Quarter: 2004Q2

REPORT INFORMATION
  Report Type: 
  Country: None (occurrence: None)
  Receive Date: 20040409
  Receipt Date: 20040331
  Transmission Date: 20050107
  Serious: Yes (Hospitalization)
  Sender: FDA-Public Use
  Company Number: 03P-167-0227092-00

PATIENT
  Age: 51 Year

DRUGS (17)
  1. HUMIRA [Suspect]
     Indication: RHEUMATOID ARTHRITIS
     Dosage: 40 MG, 1 IN 2 WK, SUBCUTANEOUS
     Route: 058
     Dates: start: 20030602, end: 20030630
  2. PROCHLORPERAZINE MALEATE [Suspect]
     Indication: NAUSEA
     Dosage: PER ORAL
     Route: 048
  3. PROCHLORPERAZINE MALEATE [Suspect]
     Indication: VERTIGO
     Dosage: PER ORAL
     Route: 048
  4. PREDNISOLONE [Concomitant]
  5. FRUMIL [Concomitant]
  6. LOPERAMIDE HCL [Concomitant]
  7. ETORICOXIB [Concomitant]
  8. PERINDOPRIL [Concomitant]
  9. SULFINDAC [Concomitant]
  10. OMEPRAZOLE [Concomitant]
  11. FLUOXETINE [Concomitant]
  12. COCODEMOL [Concomitant]
  13. BECLOMETHASONE DIPROPIONATE [Concomitant]
  14. ALBUTEROL SULFATE [Concomitant]
  15. HYDROXYCHLOROQUINE SULFATE [Concomitant]
  16. CODEINE PHOSPHATE [Concomitant]
  17. ROFECOXIB [Concomitant]

REACTIONS (6)
  - BALANCE DISORDER [None]
  - BLOOD MAGNESIUM DECREASED [None]
  - HEADACHE [None]
  - NERVOUS SYSTEM DISORDER [None]
  - PYREXIA [None]
  - SPEECH DISORDER [None]
